FAERS Safety Report 25318850 (Version 1)
Quarter: 2025Q2

REPORT INFORMATION
  Report Type: Spontaneous
  Country: CN (occurrence: CN)
  Receive Date: 20250515
  Receipt Date: 20250515
  Transmission Date: 20250716
  Serious: Yes (Other)
  Sender: RANBAXY
  Company Number: CN-SUN PHARMACEUTICAL INDUSTRIES LTD-2025R1-507161

PATIENT
  Age: 53 Year
  Sex: Female

DRUGS (2)
  1. OCTREOTIDE [Suspect]
     Active Substance: OCTREOTIDE
     Indication: Phaeochromocytoma
     Route: 058
  2. DENOSUMAB [Suspect]
     Active Substance: DENOSUMAB
     Indication: Phaeochromocytoma
     Route: 058

REACTIONS (1)
  - Haemoptysis [Unknown]
